FAERS Safety Report 11336895 (Version 1)
Quarter: 2015Q3

REPORT INFORMATION
  Report Type: Spontaneous
  Country: US (occurrence: US)
  Receive Date: 20150804
  Receipt Date: 20150804
  Transmission Date: 20151125
  Serious: No
  Sender: FDA-Public Use
  Company Number: US-PFIZER INC-2015258045

PATIENT
  Age: 29 Year
  Sex: Male
  Weight: 59.86 kg

DRUGS (1)
  1. VIAGRA [Suspect]
     Active Substance: SILDENAFIL CITRATE
     Dosage: UNK (SOMETIMES IN MORNING OR AT NIGHT)
     Dates: start: 201505

REACTIONS (2)
  - Drug ineffective [Unknown]
  - Erection increased [Unknown]
